FAERS Safety Report 4613309-3 (Version None)
Quarter: 2005Q1

REPORT INFORMATION
  Report Type: 
  Country: None (occurrence: None)
  Receive Date: 20050315
  Receipt Date: 20050302
  Transmission Date: 20050727
  Serious: Yes (Other)
  Sender: FDA-Public Use
  Company Number: GBS050216560

PATIENT
  Age: 10 Year
  Sex: Female
  Weight: 24 kg

DRUGS (2)
  1. STRATTERA [Suspect]
     Indication: ATTENTION DEFICIT/HYPERACTIVITY DISORDER
     Dosage: 10 MG DAY
     Dates: start: 20041230, end: 20041230
  2. CONCERTA [Concomitant]

REACTIONS (6)
  - BODY TEMPERATURE INCREASED [None]
  - DIZZINESS [None]
  - HEADACHE [None]
  - INCREASED TENDENCY TO BRUISE [None]
  - PHARYNGOLARYNGEAL PAIN [None]
  - VOMITING [None]
